FAERS Safety Report 13384800 (Version 1)
Quarter: 2017Q1

REPORT INFORMATION
  Report Type: Spontaneous
  Country: US (occurrence: None)
  Receive Date: 20170329
  Receipt Date: 20170329
  Transmission Date: 20170429
  Serious: Yes (Hospitalization, Other)
  Sender: FDA-Public Use
  Company Number: 1708001US

PATIENT
  Age: 55 Year
  Sex: Female

DRUGS (1)
  1. ARMOUR THYROID [Suspect]
     Active Substance: THYROID, PORCINE
     Indication: HYPOTHYROIDISM
     Route: 048

REACTIONS (13)
  - Cold sweat [None]
  - Incorrect dose administered [None]
  - Thyroid disorder [None]
  - Feeling abnormal [None]
  - Chest pain [None]
  - Nausea [None]
  - Heart rate decreased [None]
  - Pulmonary embolism [None]
  - Myocardial infarction [None]
  - Loss of consciousness [None]
  - Vomiting [None]
  - Thyroid function test abnormal [None]
  - Feeling hot [None]

NARRATIVE: CASE EVENT DATE: 201702
